FAERS Safety Report 19471821 (Version 3)
Quarter: 2021Q4

REPORT INFORMATION
  Report Type: Spontaneous
  Country: FR (occurrence: FR)
  Receive Date: 20210629
  Receipt Date: 20211006
  Transmission Date: 20220303
  Serious: Yes (Hospitalization, Other)
  Sender: FDA-Public Use
  Company Number: FR-AFSSAPS-AN20212269

PATIENT
  Age: 53 Year
  Sex: Female
  Weight: 68 kg

DRUGS (9)
  1. EPHEDRINE [Suspect]
     Active Substance: EPHEDRINE
     Indication: Anaesthesia
     Dosage: 6 MILLIGRAM 1 TOTAL
     Route: 040
     Dates: start: 20210604, end: 20210604
  2. ACETAMINOPHEN [Suspect]
     Active Substance: ACETAMINOPHEN
     Indication: Pain
     Dosage: 1 GRAM 1 TOTAL
     Route: 041
     Dates: start: 20210604, end: 20210604
  3. TIROFIBAN HYDROCHLORIDE [Suspect]
     Active Substance: TIROFIBAN HYDROCHLORIDE
     Indication: Cardiovascular event prophylaxis
     Dosage: 592 MICROGRAM , 1 TOTAL
     Route: 041
     Dates: start: 20210604, end: 20210604
  4. ATRACURIUM [Suspect]
     Active Substance: ATRACURIUM
     Indication: Anaesthesia
     Dosage: 30 MILLIGRAM , 1 TOTAL
     Route: 040
     Dates: start: 20210604, end: 20210604
  5. HEPARIN SODIUM [Suspect]
     Active Substance: HEPARIN SODIUM
     Indication: Thrombosis prophylaxis
     Dosage: 7985 INTERNATIONAL UNIT, 1 TOTAL
     Route: 041
     Dates: start: 20210604, end: 20210604
  6. NEOSYNEPHRINE [Suspect]
     Active Substance: PHENYLEPHRINE HYDROCHLORIDE
     Indication: Anaesthesia
     Dosage: 650 MICROGRAM , 1 TOTAL
     Route: 040
     Dates: start: 20210604, end: 20210604
  7. PROPOFOL [Suspect]
     Active Substance: PROPOFOL
     Indication: Anaesthesia
     Dosage: 200 MILLIGRAM , 1 TOTAL
     Route: 040
     Dates: start: 20210604, end: 20210604
  8. SUFENTA [Suspect]
     Active Substance: SUFENTANIL CITRATE
     Indication: Anaesthesia
     Dosage: 25 MICROGRAM ,1 TOTAL
     Route: 040
     Dates: start: 20210604, end: 20210604
  9. VISIPAQUE [Suspect]
     Active Substance: IODIXANOL
     Indication: Radioembolisation
     Dosage: 184 MILLILITER, 1 TOTAL
     Route: 040
     Dates: start: 20210604, end: 20210604

REACTIONS (1)
  - Ischaemic stroke [Recovering/Resolving]

NARRATIVE: CASE EVENT DATE: 20210604
